FAERS Safety Report 8992042 (Version 1)
Quarter: 2012Q4

REPORT INFORMATION
  Report Type: 
  Country: US (occurrence: US)
  Receive Date: 20121231
  Receipt Date: 20121231
  Transmission Date: 20130627
  Serious: Yes (Other)
  Sender: FDA-Public Use
  Company Number: PHEH2012US018722

PATIENT
  Age: 52 Year
  Sex: Female

DRUGS (5)
  1. GILENYA [Suspect]
     Indication: MULTIPLE SCLEROSIS
     Dosage: 0.5 mg, QD
     Route: 048
     Dates: start: 20120301, end: 20120920
  2. RESTORIL [Concomitant]
     Indication: SLEEP DISORDER
     Dosage: 30 mg, QHS
     Route: 048
  3. LYRICA [Concomitant]
     Indication: PAIN
     Dosage: 75 mg, BID
     Route: 048
  4. BACLOFEN [Concomitant]
     Indication: MUSCLE SPASTICITY
     Dosage: 10 mg, TID
     Route: 048
  5. VALIUM [Concomitant]
     Indication: ANXIETY
     Dosage: 5 mg, BID

REACTIONS (7)
  - Pachymeningitis [Unknown]
  - Meningeal disorder [Recovered/Resolved]
  - Headache [Recovering/Resolving]
  - Haemorrhage intracranial [Recovered/Resolved]
  - Photophobia [Unknown]
  - Nausea [Unknown]
  - Migraine [Unknown]
